FAERS Safety Report 8691076 (Version 2)
Quarter: 2013Q4

REPORT INFORMATION
  Report Type: Spontaneous
  Country: US (occurrence: US)
  Receive Date: 20120730
  Receipt Date: 20131031
  Transmission Date: 20140711
  Serious: No
  Sender: FDA-Public Use
  Company Number: US-009507513-2012SP034072

PATIENT
  Age: 29 Year
  Sex: Female
  Weight: 76.2 kg

DRUGS (2)
  1. IMPLANON [Suspect]
     Indication: CONTRACEPTION
     Dosage: 1 DF, UNK
     Dates: start: 20120615, end: 20120615
  2. IMPLANON [Suspect]
     Dosage: 1 DF, UNK
     Dates: start: 20120615

REACTIONS (2)
  - Medical device complication [Recovered/Resolved]
  - No adverse event [Unknown]
